FAERS Safety Report 8963598 (Version 2)
Quarter: 2013Q1

REPORT INFORMATION
  Report Type: Spontaneous
  Country: US (occurrence: US)
  Receive Date: 20121213
  Receipt Date: 20130107
  Transmission Date: 20140127
  Serious: Yes (Death)
  Sender: FDA-Public Use
  Company Number: US-CELGENEUS-163-21660-12121219

PATIENT
  Age: 60 Year
  Sex: Female

DRUGS (2)
  1. ABRAXANE [Suspect]
     Indication: BREAST CANCER METASTATIC
     Dosage: 100 MILLIGRAM/SQ. METER
     Route: 041
     Dates: start: 20121106, end: 20121106
  2. CARBOPLATIN [Concomitant]
     Indication: NEOPLASM MALIGNANT
     Dosage: 215 MILLIGRAM
     Route: 065
     Dates: start: 20121106, end: 20121106

REACTIONS (2)
  - Breast cancer metastatic [Fatal]
  - Drug ineffective [Unknown]
